FAERS Safety Report 11093184 (Version 1)
Quarter: 2015Q2

REPORT INFORMATION
  Report Type: Spontaneous
  Country: US (occurrence: None)
  Receive Date: 20150504
  Receipt Date: 20150504
  Transmission Date: 20150821
  Serious: Yes (Other)
  Sender: FDA-Public Use
  Company Number: 001904782A

PATIENT
  Age: 66 Year
  Sex: Female

DRUGS (4)
  1. PROACTIVPLUS SKIN SMOOTHING EXFOLIATOR [Suspect]
     Active Substance: BENZOYL PEROXIDE
     Indication: ACNE
     Dosage: DERMAL
     Dates: start: 20150323, end: 20150325
  2. PROACTIV PLUS PORE TARGETING TREATMENT [Suspect]
     Active Substance: BENZOYL PEROXIDE
     Indication: ACNE
     Dosage: DERMAL?
     Dates: start: 20150323, end: 20150325
  3. PROACTIV SKIN LIGHTENING [Suspect]
     Active Substance: HYDROQUINONE
     Indication: ACNE
     Dosage: DERMAL?
     Dates: start: 20150323, end: 20150325
  4. PROACTIV PLUS COMPLEXION PERFECTING HYDRATOR [Suspect]
     Active Substance: SALICYLIC ACID
     Indication: ACNE
     Dosage: DERMAL
     Dates: start: 20150323, end: 20150325

REACTIONS (4)
  - Burning sensation [None]
  - Erythema [None]
  - Feeling abnormal [None]
  - Swelling face [None]

NARRATIVE: CASE EVENT DATE: 20150326
